FAERS Safety Report 10088304 (Version 1)
Quarter: 2014Q2

REPORT INFORMATION
  Report Type: Report from Study
  Country: US (occurrence: US)
  Receive Date: 20140421
  Receipt Date: 20140421
  Transmission Date: 20141212
  Serious: Yes (Death, Hospitalization, Other)
  Sender: FDA-Public Use
  Company Number: US-BRISTOL-MYERS SQUIBB COMPANY-20617270

PATIENT
  Age: 77 Year
  Sex: Male
  Weight: 69 kg

DRUGS (2)
  1. IPILIMUMAB [Suspect]
     Indication: MALIGNANT MELANOMA
     Dosage: INDU: IV OVER 90 MINS -4 DOSES. MAINT: 3 MG/KG IV OVER 90 MINS ON WKS24,36,48,60.TOTALDOSE:209MG
     Route: 042
     Dates: start: 20140401, end: 20140401
  2. INTERFERON ALFA-2B [Suspect]
     Indication: MALIGNANT MELANOMA
     Dosage: IND:20MU/M2 IV ON DAY 1-5*4WK?MAIN:10MU/M2 SQ ON DAY 1,3,5*48 WK.TOTAL DOSE: 35MU
     Route: 042
     Dates: start: 20140401, end: 20140401

REACTIONS (4)
  - Malignant neoplasm progression [Fatal]
  - Dyspnoea [Not Recovered/Not Resolved]
  - Chills [Recovered/Resolved]
  - Atrial fibrillation [Not Recovered/Not Resolved]
